FAERS Safety Report 25331734 (Version 2)
Quarter: 2025Q2

REPORT INFORMATION
  Report Type: Report from Study
  Country: AR (occurrence: AR)
  Receive Date: 20250519
  Receipt Date: 20250611
  Transmission Date: 20250717
  Serious: Yes (Other)
  Sender: NOVARTIS
  Company Number: AR-002147023-NVSC2025AR079745

PATIENT
  Sex: Female

DRUGS (9)
  1. TASIGNA [Suspect]
     Active Substance: NILOTINIB
     Indication: Chronic myeloid leukaemia
     Dosage: 3 DOSAGE FORM, QD (FOR 5 MONTHS)
     Route: 065
     Dates: start: 202209
  2. TASIGNA [Suspect]
     Active Substance: NILOTINIB
     Dosage: 1 DOSAGE FORM (ONE TABLET A DAY), QD
     Route: 065
     Dates: start: 2024, end: 2024
  3. TASIGNA [Suspect]
     Active Substance: NILOTINIB
     Dosage: 2 DOSAGE FORM (TWO TABLETS A DAY WHEN THE MARKERS WERE HIGH), QD
     Route: 065
  4. HYDROXYUREA [Concomitant]
     Active Substance: HYDROXYUREA
     Indication: Chronic myeloid leukaemia
     Route: 065
  5. HYDROXYUREA [Concomitant]
     Active Substance: HYDROXYUREA
     Dosage: 2 DOSAGE FORM, QD
     Route: 065
     Dates: end: 202312
  6. HYDROXYUREA [Concomitant]
     Active Substance: HYDROXYUREA
     Dosage: 2 DOSAGE FORM, QD
     Route: 065
     Dates: start: 202410
  7. PONATINIB [Concomitant]
     Active Substance: PONATINIB
     Indication: Chronic myelomonocytic leukaemia with N-ras gene mutation
     Route: 065
     Dates: start: 202312, end: 202410
  8. PONATINIB [Concomitant]
     Active Substance: PONATINIB
     Dosage: 2 DOSAGE FORM, Q12H (TABLET)
     Route: 065
  9. CYCLOPHOSPHAMIDE [Concomitant]
     Active Substance: CYCLOPHOSPHAMIDE
     Indication: Cell marker increased
     Route: 065

REACTIONS (5)
  - Chronic myeloid leukaemia [Unknown]
  - Disease progression [Unknown]
  - Tumour marker increased [Unknown]
  - Drug resistance mutation [Unknown]
  - Generalised oedema [Unknown]

NARRATIVE: CASE EVENT DATE: 20240101
